FAERS Safety Report 19898077 (Version 2)
Quarter: 2021Q4

REPORT INFORMATION
  Report Type: Spontaneous
  Country: US (occurrence: US)
  Receive Date: 20210929
  Receipt Date: 20211004
  Transmission Date: 20220303
  Serious: Yes (Hospitalization, Other)
  Sender: FDA-Public Use
  Company Number: US-OTSUKA-2020_023223

PATIENT
  Age: 4 Decade
  Sex: Female

DRUGS (5)
  1. ABILIFY [Suspect]
     Active Substance: ARIPIPRAZOLE
     Indication: Product used for unknown indication
     Dosage: UNK
     Route: 065
  2. REXULTI [Suspect]
     Active Substance: BREXPIPRAZOLE
     Indication: Major depression
     Dosage: 0.5 MG, SINGLE
     Route: 065
     Dates: start: 202009, end: 202009
  3. REXULTI [Suspect]
     Active Substance: BREXPIPRAZOLE
     Indication: Adjuvant therapy
  4. LEXAPRO [Concomitant]
     Active Substance: ESCITALOPRAM OXALATE
     Indication: Major depression
     Dosage: UNK
     Route: 065
  5. LEXAPRO [Concomitant]
     Active Substance: ESCITALOPRAM OXALATE
     Indication: Adjuvant therapy

REACTIONS (7)
  - Suicidal ideation [Recovered/Resolved]
  - Suicidal ideation [Unknown]
  - Remission not achieved [Unknown]
  - Ear discomfort [Unknown]
  - Crying [Unknown]
  - Tinnitus [Unknown]
  - Agitation [Unknown]

NARRATIVE: CASE EVENT DATE: 20200901
